FAERS Safety Report 4827711-8 (Version None)
Quarter: 2005Q4

REPORT INFORMATION
  Report Type: 
  Country: None (occurrence: None)
  Receive Date: 20051114
  Receipt Date: 20051104
  Transmission Date: 20060501
  Serious: Yes (Hospitalization, Disabling)
  Sender: FDA-Public Use
  Company Number: US-MERCK-0511USA01172

PATIENT
  Age: 65 Year
  Sex: Male
  Weight: 82 kg

DRUGS (5)
  1. VIOXX [Suspect]
     Indication: BACK PAIN
     Route: 048
     Dates: start: 20001023, end: 20041001
  2. VIOXX [Suspect]
     Route: 048
     Dates: start: 19990519
  3. ASPIRIN [Concomitant]
     Route: 065
     Dates: start: 19600101
  4. VOLTAREN [Concomitant]
     Route: 065
     Dates: start: 19970101, end: 20001201
  5. SYNTHROID [Concomitant]
     Route: 065

REACTIONS (17)
  - CARDIAC FAILURE CONGESTIVE [None]
  - CHOLECYSTITIS CHRONIC [None]
  - CORONARY ARTERY DISEASE [None]
  - DYSPNOEA EXERTIONAL [None]
  - GASTRITIS [None]
  - GASTROOESOPHAGEAL REFLUX DISEASE [None]
  - HAEMOPTYSIS [None]
  - HYPERLIPIDAEMIA [None]
  - HYPERTENSION [None]
  - MENIERE'S DISEASE [None]
  - MYOCARDIAL INFARCTION [None]
  - PAIN IN EXTREMITY [None]
  - PNEUMONIA [None]
  - PULMONARY HAEMORRHAGE [None]
  - RENAL DISORDER [None]
  - SLEEP DISORDER [None]
  - SPINAL COLUMN STENOSIS [None]
